FAERS Safety Report 9299143 (Version 1)
Quarter: 2013Q2

REPORT INFORMATION
  Report Type: Spontaneous
  Country: US (occurrence: US)
  Receive Date: 20130520
  Receipt Date: 20130520
  Transmission Date: 20140414
  Serious: Yes (Other)
  Sender: FDA-Public Use
  Company Number: US-PFIZER INC-2013154191

PATIENT
  Age: 85 Year
  Sex: Female
  Weight: 45.35 kg

DRUGS (3)
  1. ROBITUSSIN COUGH AND CHEST CONGESTION DM [Suspect]
     Indication: NASOPHARYNGITIS
     Dosage: UNK, DAILY
     Dates: start: 20130515, end: 20130516
  2. ROBITUSSIN COUGH AND CHEST CONGESTION DM [Suspect]
     Indication: COUGH
  3. ROBITUSSIN COUGH AND CHEST CONGESTION DM [Suspect]
     Indication: RHINORRHOEA

REACTIONS (4)
  - Aphagia [Recovered/Resolved]
  - Nausea [Recovered/Resolved]
  - Nasal congestion [Not Recovered/Not Resolved]
  - Drug ineffective [Unknown]
